FAERS Safety Report 15584045 (Version 1)
Quarter: 2018Q4

REPORT INFORMATION
  Report Type: Spontaneous
  Country: US (occurrence: US)
  Receive Date: 20181105
  Receipt Date: 20181105
  Transmission Date: 20190205
  Serious: Yes (Hospitalization)
  Sender: FDA-Public Use
  Company Number: None

PATIENT
  Age: 64 Year
  Sex: Female
  Weight: 54.9 kg

DRUGS (8)
  1. PANTOPRAZOLE 20MG [Concomitant]
     Active Substance: PANTOPRAZOLE SODIUM
  2. AMITIZA 8MCG [Concomitant]
  3. MIRALAX [Concomitant]
     Active Substance: POLYETHYLENE GLYCOL 3350
  4. SENNA-LAX [Concomitant]
     Active Substance: SENNOSIDES
  5. CAPECITABINE. [Suspect]
     Active Substance: CAPECITABINE
     Indication: COLON CANCER
     Route: 048
     Dates: start: 20180825, end: 20181014
  6. NORCO 5-325 MG [Concomitant]
  7. ESCITALOPRAM 10MG [Concomitant]
     Active Substance: ESCITALOPRAM OXALATE
  8. LYRICA [Concomitant]
     Active Substance: PREGABALIN

REACTIONS (4)
  - Clostridium difficile colitis [None]
  - Skin discolouration [None]
  - Oral discomfort [None]
  - Nausea [None]

NARRATIVE: CASE EVENT DATE: 20181014
